FAERS Safety Report 17201078 (Version 2)
Quarter: 2020Q1

REPORT INFORMATION
  Report Type: Report from Study
  Country: US (occurrence: US)
  Receive Date: 20191226
  Receipt Date: 20200122
  Transmission Date: 20200409
  Serious: No
  Sender: FDA-Public Use
  Company Number: NVSC2019US079265

PATIENT
  Age: 61 Year
  Sex: Female

DRUGS (2)
  1. MAYZENT [Suspect]
     Active Substance: SIPONIMOD
     Indication: MULTIPLE SCLEROSIS
     Dosage: 1 MG
     Route: 048
     Dates: start: 20191113
  2. MAYZENT [Suspect]
     Active Substance: SIPONIMOD
     Indication: VISION BLURRED
     Dosage: 1 MG, QID
     Route: 048
     Dates: start: 20191211

REACTIONS (1)
  - Visual impairment [Unknown]

NARRATIVE: CASE EVENT DATE: 20191212
